FAERS Safety Report 8502197-0 (Version None)
Quarter: 2012Q2

REPORT INFORMATION
  Report Type: 
  Country: None (occurrence: None)
  Receive Date: 20120405
  Receipt Date: 20100817
  Transmission Date: 20120825
  Serious: Yes (Hospitalization)
  Sender: FDA-Public Use
  Company Number: PHHY2010US46903

PATIENT
  Age: 80 Year
  Sex: Female
  Weight: 90.7 kg

DRUGS (7)
  1. HYDROCHLOROTHIAZIDE [Concomitant]
  2. RECLAST [Suspect]
     Indication: OSTEOPOROSIS
     Dosage: 5 MG/ YEARLY, INTRAVENOUS
     Route: 042
     Dates: start: 20100305
  3. BETA BLOCKING AGENTS (NO INGREDIENTS/SUBSTANCES) [Concomitant]
  4. KLOR-CON [Concomitant]
  5. OSCAL (CALCIUM CARBONATE) [Concomitant]
  6. CRESTOR [Concomitant]
  7. BENICAR [Concomitant]

REACTIONS (3)
  - DIALYSIS [None]
  - RENAL FAILURE [None]
  - RENAL TUBULAR NECROSIS [None]
